FAERS Safety Report 6732147-9 (Version None)
Quarter: 2010Q2

REPORT INFORMATION
  Report Type: 
  Country: None (occurrence: None)
  Receive Date: 20100519
  Receipt Date: 20100507
  Transmission Date: 20101027
  Serious: Yes (Hospitalization, Other)
  Sender: FDA-Public Use
  Company Number: US-SANOFI-AVENTIS-2010SA027457

PATIENT
  Age: 76 Year
  Sex: Female

DRUGS (10)
  1. PLAVIX [Suspect]
     Indication: STENT PLACEMENT
     Route: 065
     Dates: start: 20000101
  2. SYNTHROID [Concomitant]
     Indication: HYPOTHYROIDISM
  3. DIGOXIN [Concomitant]
  4. EYE DROPS [Concomitant]
  5. VERAPAMIL [Concomitant]
  6. CALCIUM [Concomitant]
  7. VITAMIN E [Concomitant]
  8. VITAMIN D [Concomitant]
  9. CYANOCOBALAMIN [Concomitant]
  10. PYRIDOXINE HCL [Concomitant]

REACTIONS (5)
  - ANGINA PECTORIS [None]
  - BLEEDING TIME SHORTENED [None]
  - CORONARY ARTERY OCCLUSION [None]
  - NO THERAPEUTIC RESPONSE [None]
  - THROMBOSIS [None]
